FAERS Safety Report 12536421 (Version 1)
Quarter: 2016Q3

REPORT INFORMATION
  Report Type: Spontaneous
  Country: GB (occurrence: GB)
  Receive Date: 20160707
  Receipt Date: 20160707
  Transmission Date: 20161109
  Serious: Yes (Other)
  Sender: FDA-Public Use
  Company Number: GB-GALDERMA-GB16004464

PATIENT
  Age: 49 Year
  Sex: Female

DRUGS (5)
  1. SKIN WHITENING MOISTURISER (CONTAINING STEROID) [Suspect]
     Active Substance: UNSPECIFIED INGREDIENT
     Indication: SKIN DISCOLOURATION
     Route: 061
  2. CLOBETASOL [Suspect]
     Active Substance: CLOBETASOL
     Indication: PRODUCT USED FOR UNKNOWN INDICATION
     Dosage: 0.05%
     Route: 061
  3. INSULIN [Concomitant]
     Active Substance: INSULIN NOS
     Indication: DIABETES MELLITUS
  4. METFORMIN [Concomitant]
     Active Substance: METFORMIN HYDROCHLORIDE
     Indication: DIABETES MELLITUS
  5. ANTIHYPERTENSIVE [Concomitant]
     Active Substance: UNSPECIFIED INGREDIENT
     Indication: HYPERTENSION

REACTIONS (6)
  - Skin striae [Unknown]
  - Cushing^s syndrome [Recovered/Resolved]
  - Cushingoid [Unknown]
  - Central obesity [Unknown]
  - Intentional product misuse [Recovered/Resolved]
  - Myopathy [Unknown]
